FAERS Safety Report 17439801 (Version 1)
Quarter: 2020Q1

REPORT INFORMATION
  Report Type: Spontaneous
  Country: IT (occurrence: IT)
  Receive Date: 20200220
  Receipt Date: 20200220
  Transmission Date: 20200409
  Serious: Yes (Hospitalization)
  Sender: FDA-Public Use
  Company Number: IT-MYLANLABS-2020M1018381

PATIENT
  Age: 24 Year
  Sex: Male

DRUGS (12)
  1. CARVEDILOL. [Suspect]
     Active Substance: CARVEDILOL
     Indication: EJECTION FRACTION DECREASED
  2. DIGOXIN. [Suspect]
     Active Substance: DIGOXIN
     Indication: CARDIAC FAILURE ACUTE
     Dosage: UNK
     Route: 065
  3. DIGOXIN. [Suspect]
     Active Substance: DIGOXIN
     Indication: EJECTION FRACTION DECREASED
  4. SPIRONOLACTONE. [Suspect]
     Active Substance: SPIRONOLACTONE
     Indication: CARDIAC FAILURE ACUTE
     Dosage: UNK
     Route: 065
  5. RAMIPRIL. [Suspect]
     Active Substance: RAMIPRIL
     Indication: EJECTION FRACTION DECREASED
  6. AMLODIPINE [Suspect]
     Active Substance: AMLODIPINE BESYLATE
     Indication: CARDIAC FAILURE ACUTE
     Dosage: UNK
     Route: 065
  7. AMLODIPINE [Suspect]
     Active Substance: AMLODIPINE BESYLATE
     Indication: EJECTION FRACTION DECREASED
  8. RAMIPRIL. [Suspect]
     Active Substance: RAMIPRIL
     Indication: CARDIAC FAILURE ACUTE
     Dosage: UNK
     Route: 065
  9. SPIRONOLACTONE. [Suspect]
     Active Substance: SPIRONOLACTONE
     Indication: EJECTION FRACTION DECREASED
  10. FUROSEMIDE. [Suspect]
     Active Substance: FUROSEMIDE
     Indication: CARDIAC FAILURE ACUTE
     Dosage: UNK
     Route: 065
  11. CARVEDILOL. [Suspect]
     Active Substance: CARVEDILOL
     Indication: CARDIAC FAILURE ACUTE
     Dosage: UNK
     Route: 065
  12. FUROSEMIDE. [Suspect]
     Active Substance: FUROSEMIDE
     Indication: EJECTION FRACTION DECREASED

REACTIONS (1)
  - Drug ineffective [Unknown]
